FAERS Safety Report 10137661 (Version 1)
Quarter: 2014Q2

REPORT INFORMATION
  Report Type: Spontaneous
  Country: US (occurrence: None)
  Receive Date: 20140428
  Receipt Date: 20140428
  Transmission Date: 20141212
  Serious: Yes (Other)
  Sender: FDA-Public Use
  Company Number: None

PATIENT
  Age: 54 Year
  Sex: Female
  Weight: 74.84 kg

DRUGS (1)
  1. ZYRTEC [Suspect]
     Indication: URTICARIA
     Dosage: OOVER AN YEAR.

REACTIONS (5)
  - Pruritus [None]
  - Urticaria [None]
  - Swollen tongue [None]
  - Withdrawal syndrome [None]
  - Lip swelling [None]
